FAERS Safety Report 8895969 (Version 2)
Quarter: 2012Q4

REPORT INFORMATION
  Report Type: 
  Country: SK (occurrence: SK)
  Receive Date: 20121108
  Receipt Date: 20121120
  Transmission Date: 20130627
  Serious: Yes (Hospitalization, Other)
  Sender: FDA-Public Use
  Company Number: SK-PFIZER INC-2012276122

PATIENT
  Age: 72 Year
  Sex: Male

DRUGS (4)
  1. LINEZOLID [Suspect]
     Indication: ANTIBIOTIC THERAPY
     Dosage: UNK
     Route: 048
  2. FLUCONAZOLE [Interacting]
     Indication: ANTIBIOTIC THERAPY
     Dosage: UNK
  3. MEROPENEM [Interacting]
     Indication: ANTIBIOTIC THERAPY
     Dosage: UNK
  4. TACROLIMUS [Interacting]
     Indication: IMMUNOSUPPRESSION
     Dosage: UNK

REACTIONS (3)
  - Drug ineffective [Unknown]
  - Drug interaction [Recovering/Resolving]
  - Pancytopenia [Recovering/Resolving]
